FAERS Safety Report 23045893 (Version 1)
Quarter: 2023Q4

REPORT INFORMATION
  Report Type: Spontaneous
  Country: US (occurrence: US)
  Receive Date: 20231009
  Receipt Date: 20231009
  Transmission Date: 20240110
  Serious: Yes (Other)
  Sender: FDA-Public Use
  Company Number: US-MYLANLABS-2023M1104466

PATIENT
  Sex: Female

DRUGS (8)
  1. TRIAMCINOLONE [Suspect]
     Active Substance: TRIAMCINOLONE
     Indication: Epidermal naevus
     Dosage: UNK
     Route: 061
  2. TRIAMCINOLONE [Suspect]
     Active Substance: TRIAMCINOLONE
     Indication: Dermatitis
  3. PIMECROLIMUS [Suspect]
     Active Substance: PIMECROLIMUS
     Indication: Epidermal naevus
     Dosage: UNK
     Route: 061
  4. PIMECROLIMUS [Suspect]
     Active Substance: PIMECROLIMUS
     Indication: Dermatitis
  5. MOMETASONE [Suspect]
     Active Substance: MOMETASONE
     Indication: Epidermal naevus
     Dosage: UNK
     Route: 061
  6. MOMETASONE [Suspect]
     Active Substance: MOMETASONE
     Indication: Dermatitis
  7. CALCIPOTRIENE [Suspect]
     Active Substance: CALCIPOTRIENE
     Indication: Epidermal naevus
     Dosage: UNK
     Route: 061
  8. CALCIPOTRIENE [Suspect]
     Active Substance: CALCIPOTRIENE
     Indication: Dermatitis

REACTIONS (2)
  - Drug ineffective [Unknown]
  - Off label use [Unknown]
